FAERS Safety Report 5061987-X (Version None)
Quarter: 2006Q3

REPORT INFORMATION
  Report Type: 
  Country: None (occurrence: None)
  Receive Date: 20060726
  Receipt Date: 20060608
  Transmission Date: 20061208
  Serious: Yes (Other)
  Sender: FDA-Public Use
  Company Number: DE-AMGEN-UK181249

PATIENT
  Sex: Female
  Weight: 52 kg

DRUGS (9)
  1. ARANESP [Suspect]
     Indication: DIALYSIS
     Route: 058
     Dates: start: 20050524, end: 20060615
  2. METOPROLOL TARTRATE [Concomitant]
     Dates: start: 20051129
  3. CALCIUM ACETATE [Concomitant]
     Dates: start: 20050121
  4. L-THYROXIN [Concomitant]
     Dates: start: 20051024
  5. CALCITRIOL [Concomitant]
     Dates: start: 20060325
  6. PREDNISOLONE [Concomitant]
     Dates: start: 20060323
  7. MADOPAR [Concomitant]
     Dates: start: 20060404
  8. RANITIDINE [Concomitant]
     Dates: start: 20060323
  9. CANDESARTAN CILEXETIL [Concomitant]
     Dates: start: 20060404

REACTIONS (4)
  - ABDOMINAL PAIN LOWER [None]
  - BREAST DISCOMFORT [None]
  - TREATMENT NONCOMPLIANCE [None]
  - VAGINAL HAEMORRHAGE [None]
